FAERS Safety Report 5750105-8 (Version None)
Quarter: 2008Q2

REPORT INFORMATION
  Report Type: 
  Country: None (occurrence: None)
  Receive Date: 20080527
  Receipt Date: 20080515
  Transmission Date: 20081010
  Serious: Yes (Other)
  Sender: FDA-Public Use
  Company Number: GB-PFIZER INC-2007097310

PATIENT
  Age: 21 Year
  Sex: Female

DRUGS (6)
  1. CHANTIX [Suspect]
     Route: 048
     Dates: start: 20070926, end: 20071026
  2. LEVOCETIRIZINE [Concomitant]
     Route: 048
  3. QVAR 40 [Concomitant]
     Route: 055
  4. ALBUTEROL [Concomitant]
     Route: 055
  5. TRIMETHOPRIM [Concomitant]
     Route: 048
  6. VESICARE [Concomitant]
     Route: 048

REACTIONS (2)
  - ANXIETY [None]
  - PARANOIA [None]
